FAERS Safety Report 25251036 (Version 1)
Quarter: 2025Q2

REPORT INFORMATION
  Report Type: Report from Study
  Country: TR (occurrence: TR)
  Receive Date: 20250429
  Receipt Date: 20250429
  Transmission Date: 20250717
  Serious: Yes (Death)
  Sender: ABBVIE
  Company Number: TR-ABBVIE-6255246

PATIENT
  Sex: Male

DRUGS (6)
  1. CARBIDOPA\LEVODOPA [Suspect]
     Active Substance: CARBIDOPA\LEVODOPA
     Indication: Parkinson^s disease
     Route: 050
     Dates: start: 20230530
  2. CARBIDOPA\LEVODOPA [Suspect]
     Active Substance: CARBIDOPA\LEVODOPA
  3. EUTHYROX [Concomitant]
     Active Substance: LEVOTHYROXINE SODIUM
     Indication: Hypothyroidism
     Dosage: FORM STRENGTH: 50 MILLIGRAM
     Route: 048
     Dates: start: 2020
  4. Diamicron [Concomitant]
     Indication: Diabetes mellitus
     Dosage: FORM STRENGTH: 30 MILLIGRAM
     Route: 048
  5. Alyse [Concomitant]
     Indication: Depression
     Dosage: FORM STRENGTH: 75 MILLIGRAM
     Route: 048
     Dates: start: 2021
  6. Doenza [Concomitant]
     Indication: Dementia
     Dosage: FORM STRENGTH: 10 MILLIGRAM
     Route: 048
     Dates: start: 2021

REACTIONS (1)
  - General physical health deterioration [Fatal]
